FAERS Safety Report 4823223-6 (Version None)
Quarter: 2005Q4

REPORT INFORMATION
  Report Type: 
  Country: None (occurrence: None)
  Receive Date: 20051107
  Receipt Date: 20051107
  Transmission Date: 20060501
  Serious: Yes (Hospitalization)
  Sender: FDA-Public Use
  Company Number: None

PATIENT
  Age: 58 Year
  Sex: Female
  Weight: 76.8 kg

DRUGS (10)
  1. ZYVOX [Suspect]
     Indication: WOUND INFECTION STAPHYLOCOCCAL
     Dosage: 600MG IV Q12H
     Route: 042
     Dates: start: 20051006, end: 20051014
  2. PLAVIX [Concomitant]
  3. ALPRAZOLAM [Concomitant]
  4. L-THYROXINE [Concomitant]
  5. RENAGEL [Concomitant]
  6. HYDROXYZINE [Concomitant]
  7. CALCITRIOL [Concomitant]
  8. PREMARIN [Concomitant]
  9. INSULIN [Concomitant]
  10. PROCHLORPERAZINE [Concomitant]

REACTIONS (1)
  - PLATELET COUNT DECREASED [None]
